APPROVED DRUG PRODUCT: ANEXSIA 7.5/650
Active Ingredient: ACETAMINOPHEN; HYDROCODONE BITARTRATE
Strength: 650MG;7.5MG
Dosage Form/Route: TABLET;ORAL
Application: A089725 | Product #001
Applicant: MALLINCKRODT CHEMICAL INC
Approved: Sep 30, 1987 | RLD: No | RS: No | Type: DISCN